FAERS Safety Report 13661159 (Version 1)
Quarter: 2017Q2

REPORT INFORMATION
  Report Type: Report from Study
  Country: US (occurrence: US)
  Receive Date: 20170616
  Receipt Date: 20170616
  Transmission Date: 20170830
  Serious: No
  Sender: FDA-Public Use
  Company Number: US-US WORLDMEDS, LLC-USW201703-000432

PATIENT
  Sex: Male
  Weight: 136.07 kg

DRUGS (16)
  1. APOKYN [Suspect]
     Active Substance: APOMORPHINE HYDROCHLORIDE
     Indication: PARKINSON^S DISEASE
     Route: 058
     Dates: start: 20161220, end: 20170320
  2. XANAX [Concomitant]
     Active Substance: ALPRAZOLAM
     Indication: DEPRESSION
  3. NEUPRO [Concomitant]
     Active Substance: ROTIGOTINE
     Dates: end: 20170320
  4. CYCLOBENAPINE [Concomitant]
     Dates: end: 20170320
  5. CYMBALTA [Concomitant]
     Active Substance: DULOXETINE HYDROCHLORIDE
     Route: 048
  6. SEROQUEL [Concomitant]
     Active Substance: QUETIAPINE FUMARATE
  7. VESICARE [Concomitant]
     Active Substance: SOLIFENACIN SUCCINATE
     Indication: HYPERTONIC BLADDER
  8. PRILOSEC [Concomitant]
     Active Substance: OMEPRAZOLE MAGNESIUM
     Indication: GASTROOESOPHAGEAL REFLUX DISEASE
  9. PRILOSEC [Concomitant]
     Active Substance: OMEPRAZOLE MAGNESIUM
     Indication: DYSPEPSIA
  10. LASIX [Concomitant]
     Active Substance: FUROSEMIDE
     Indication: FLUID OVERLOAD
  11. SINEMET [Concomitant]
     Active Substance: CARBIDOPA\LEVODOPA
     Indication: PARKINSON^S DISEASE
     Route: 048
  12. METOPROLOL SUCCINATE. [Concomitant]
     Active Substance: METOPROLOL SUCCINATE
     Indication: HYPERTENSION
  13. VESICARE [Concomitant]
     Active Substance: SOLIFENACIN SUCCINATE
     Indication: DYSURIA
  14. SEROQUEL [Concomitant]
     Active Substance: QUETIAPINE FUMARATE
  15. ZETIA [Concomitant]
     Active Substance: EZETIMIBE
     Indication: HYPERLIPIDAEMIA
  16. XANAX [Concomitant]
     Active Substance: ALPRAZOLAM
     Indication: ANXIETY

REACTIONS (1)
  - Fall [Recovered/Resolved]
